FAERS Safety Report 13920947 (Version 1)
Quarter: 2017Q3

REPORT INFORMATION
  Report Type: Spontaneous
  Country: US (occurrence: US)
  Receive Date: 20170830
  Receipt Date: 20170830
  Transmission Date: 20171127
  Serious: No
  Sender: FDA-Public Use
  Company Number: US-PFIZER INC-2017375661

PATIENT
  Age: 56 Year
  Sex: Female

DRUGS (1)
  1. XELJANZ XR [Suspect]
     Active Substance: TOFACITINIB CITRATE
     Dosage: 11 MG, UNK

REACTIONS (12)
  - Sensory loss [Unknown]
  - Joint range of motion decreased [Unknown]
  - Fibromyalgia [Unknown]
  - Arthralgia [Unknown]
  - Swelling [Unknown]
  - Fatigue [Unknown]
  - Weight increased [Unknown]
  - Rash [Unknown]
  - Tenderness [Unknown]
  - Insomnia [Unknown]
  - Hypoaesthesia [Unknown]
  - Paraesthesia [Unknown]
